FAERS Safety Report 10202588 (Version 1)
Quarter: 2014Q2

REPORT INFORMATION
  Report Type: Spontaneous
  Country: GB (occurrence: GB)
  Receive Date: 20140528
  Receipt Date: 20140528
  Transmission Date: 20141212
  Serious: Yes (Other)
  Sender: FDA-Public Use
  Company Number: GB-TEVA-482501ISR

PATIENT
  Age: 83 Year
  Sex: Male
  Weight: 66.22 kg

DRUGS (10)
  1. QUETIAPINE [Suspect]
     Indication: AGITATION
     Dosage: INITIALLY 25MG AT NIGHT
     Route: 048
     Dates: start: 20140414, end: 20140421
  2. QUETIAPINE [Suspect]
     Indication: AGITATION
     Dosage: 50 MILLIGRAM DAILY; INCREASED TO 50MG AT NIGHT
     Route: 048
     Dates: start: 20140421, end: 20140422
  3. AMLODIPINE [Concomitant]
  4. ASPIRIN [Concomitant]
  5. CITALOPRAM [Concomitant]
  6. LORAZEPAM [Concomitant]
  7. LOSARTAN POTASSIUM [Concomitant]
  8. MEMANTINE HYDROCHLORIDE [Concomitant]
  9. RISPERIDONE [Concomitant]
  10. ZOPICLONE [Concomitant]

REACTIONS (7)
  - Restlessness [Not Recovered/Not Resolved]
  - Seizure like phenomena [Recovered/Resolved with Sequelae]
  - Somnolence [Recovered/Resolved with Sequelae]
  - Agitation [Recovered/Resolved with Sequelae]
  - Dyskinesia [Recovered/Resolved with Sequelae]
  - Bruxism [Recovered/Resolved with Sequelae]
  - Staring [Recovered/Resolved with Sequelae]
